FAERS Safety Report 8563472-7 (Version None)
Quarter: 2012Q3

REPORT INFORMATION
  Report Type: 
  Country: None (occurrence: None)
  Receive Date: 20120802
  Receipt Date: 20120723
  Transmission Date: 20120928
  Serious: Yes (Disabling, Other)
  Sender: FDA-Public Use
  Company Number: US-MSD-1207USA011293

PATIENT

DRUGS (4)
  1. ZOCOR [Suspect]
     Dosage: 1 DF, QD
     Route: 048
  2. CITALOPRAM HYDROBROMIDE [Concomitant]
     Dosage: UNK
  3. NAPROXEN (ALEVE) [Concomitant]
     Dosage: UNK
  4. NAPROXEN (ALEVE) [Concomitant]
     Dosage: UNK

REACTIONS (9)
  - ABASIA [None]
  - PAIN IN EXTREMITY [None]
  - BLOOD CREATINE PHOSPHOKINASE INCREASED [None]
  - MUSCLE SPASMS [None]
  - NO THERAPEUTIC RESPONSE [None]
  - HYPOAESTHESIA [None]
  - FALL [None]
  - PARAESTHESIA [None]
  - MUSCULAR WEAKNESS [None]
